FAERS Safety Report 10548413 (Version 1)
Quarter: 2014Q4

REPORT INFORMATION
  Report Type: Report from Study
  Country: FR (occurrence: FR)
  Receive Date: 20141028
  Receipt Date: 20141028
  Transmission Date: 20150529
  Serious: Yes (Hospitalization)
  Sender: FDA-Public Use
  Company Number: FR-TEVA-516669ISR

PATIENT
  Age: 68 Year
  Sex: Female
  Weight: 56 kg

DRUGS (4)
  1. BEVACIZUMAB [Concomitant]
     Active Substance: BEVACIZUMAB
     Indication: OVARIAN CANCER
     Dosage: ONGOING
     Route: 042
     Dates: start: 20140124
  2. PACLITAXEL. [Concomitant]
     Active Substance: PACLITAXEL
     Indication: OVARIAN CANCER
     Dosage: ONGOING
     Route: 042
     Dates: start: 20140124
  3. CARBOPLATIN. [Concomitant]
     Active Substance: CARBOPLATIN
     Indication: OVARIAN CANCER
     Dosage: ONGOING, DOSAGE: 2.00 AREA UNDER THE CURVE
     Route: 042
     Dates: start: 20140124
  4. TEVAGRASTIM [Suspect]
     Active Substance: FILGRASTIM
     Indication: DRUG THERAPY
     Dosage: ONGOING
     Route: 058
     Dates: start: 20141007

REACTIONS (2)
  - Hyperthermia [Recovering/Resolving]
  - General physical health deterioration [Recovering/Resolving]

NARRATIVE: CASE EVENT DATE: 20141015
